FAERS Safety Report 4274782-6 (Version None)
Quarter: 2004Q1

REPORT INFORMATION
  Report Type: 
  Country: None (occurrence: None)
  Receive Date: 20040116
  Receipt Date: 20040106
  Transmission Date: 20041129
  Serious: Yes (Hospitalization)
  Sender: FDA-Public Use
  Company Number: 2003-BP-10867NB

PATIENT
  Age: 64 Year
  Sex: Female

DRUGS (2)
  1. MICARDIS [Suspect]
     Indication: HYPERTENSION
     Dosage: 40 MG PO
     Route: 048
     Dates: start: 20030926, end: 20031211
  2. APIRACOHL (TODRALAZINE) (TA) [Suspect]
     Dosage: 30 MG PO
     Route: 048
     Dates: start: 20030926, end: 20031211

REACTIONS (4)
  - HEPATIC FUNCTION ABNORMAL [None]
  - HYPERHIDROSIS [None]
  - POLYURIA [None]
  - THIRST [None]
